APPROVED DRUG PRODUCT: ACYCLOVIR SODIUM
Active Ingredient: ACYCLOVIR SODIUM
Strength: EQ 50MG BASE/ML
Dosage Form/Route: INJECTABLE;INJECTION
Application: A074930 | Product #001 | TE Code: AP
Applicant: FRESENIUS KABI USA LLC
Approved: May 13, 1998 | RLD: No | RS: Yes | Type: RX